FAERS Safety Report 5152771-7 (Version None)
Quarter: 2006Q4

REPORT INFORMATION
  Report Type: 
  Country: None (occurrence: None)
  Receive Date: 20060918
  Receipt Date: 20050818
  Transmission Date: 20070319
  Serious: Yes (Other)
  Sender: FDA-Public Use
  Company Number: US-JNJFOC-20050504795

PATIENT
  Age: 43 Year
  Sex: Female

DRUGS (4)
  1. TOPAMAX [Suspect]
     Indication: DRUG USE FOR UNKNOWN INDICATION
     Dosage: 200 MG 2 IN 1 DAY UNKNOWN
     Route: 065
  2. TOPAMAX [Suspect]
     Indication: EPILEPSY
     Dosage: 200 MG 2 IN 1 DAY UNKNOWN
     Route: 065
  3. SEROQUEL [Concomitant]
  4. RISPERDAL [Suspect]

REACTIONS (8)
  - ANGER [None]
  - CONFUSIONAL STATE [None]
  - CONVULSION [None]
  - LETHARGY [None]
  - MOOD SWINGS [None]
  - PARAMNESIA [None]
  - SOCIAL AVOIDANT BEHAVIOUR [None]
  - WEIGHT DECREASED [None]
